FAERS Safety Report 20200870 (Version 1)
Quarter: 2021Q4

REPORT INFORMATION
  Report Type: Spontaneous
  Country: US (occurrence: None)
  Receive Date: 20211217
  Receipt Date: 20211217
  Transmission Date: 20220303
  Serious: No
  Sender: FDA-Public Use
  Company Number: None

PATIENT

DRUGS (2)
  1. POMALYST [Suspect]
     Active Substance: POMALIDOMIDE
  2. KYPROLIS [Suspect]
     Active Substance: CARFILZOMIB

REACTIONS (7)
  - Product dose omission issue [None]
  - Accidental underdose [None]
  - Malignant neoplasm progression [None]
  - Muscular weakness [None]
  - Paraplegia [None]
  - Bedridden [None]
  - Incontinence [None]
